FAERS Safety Report 11360125 (Version 2)
Quarter: 2015Q3

REPORT INFORMATION
  Report Type: Spontaneous
  Country: US (occurrence: US)
  Receive Date: 20150810
  Receipt Date: 20150817
  Transmission Date: 20151125
  Serious: Yes (Other)
  Sender: FDA-Public Use
  Company Number: US-BEH-2015052839

PATIENT
  Age: 60 Year
  Sex: Male

DRUGS (3)
  1. FVIII [Suspect]
     Active Substance: ANTIHEMOPHILIC FACTOR HUMAN\HUMAN COAGULATION FACTOR VIII/VON WILLEBRAND FACTOR COMPLEX
     Indication: PROPHYLAXIS
  2. FVIII [Suspect]
     Active Substance: ANTIHEMOPHILIC FACTOR HUMAN\HUMAN COAGULATION FACTOR VIII/VON WILLEBRAND FACTOR COMPLEX
     Indication: PROPHYLAXIS
  3. FVIII [Suspect]
     Active Substance: ANTIHEMOPHILIC FACTOR HUMAN\HUMAN COAGULATION FACTOR VIII/VON WILLEBRAND FACTOR COMPLEX
     Indication: IMMUNE TOLERANCE INDUCTION

REACTIONS (5)
  - Retroperitoneal haemorrhage [Recovered/Resolved]
  - Abdominal pain [Recovered/Resolved]
  - Anaemia [Recovered/Resolved]
  - Factor VIII inhibition [Recovered/Resolved]
  - Extravasation [Recovered/Resolved]
